FAERS Safety Report 10215623 (Version 4)
Quarter: 2014Q2

REPORT INFORMATION
  Report Type: Report from Study
  Country: AU (occurrence: AU)
  Receive Date: 20140604
  Receipt Date: 20140617
  Transmission Date: 20141212
  Serious: Yes (Hospitalization)
  Sender: FDA-Public Use
  Company Number: AU-ROCHE-1224813

PATIENT
  Age: 62 Year
  Sex: Female
  Weight: 109 kg

DRUGS (3)
  1. ACTEMRA [Suspect]
     Indication: RHEUMATOID ARTHRITIS
     Route: 042
     Dates: start: 20100319
  2. ACTEMRA [Suspect]
     Route: 042
  3. ACTEMRA [Suspect]
     Route: 065
     Dates: start: 201406

REACTIONS (5)
  - Knee operation [Recovered/Resolved]
  - Arthritis infective [Recovered/Resolved]
  - Skin ulcer [Recovered/Resolved]
  - Device malfunction [Not Recovered/Not Resolved]
  - Osteomyelitis [Recovered/Resolved]
